FAERS Safety Report 20393686 (Version 1)
Quarter: 2022Q1

REPORT INFORMATION
  Report Type: Spontaneous
  Country: None (occurrence: US)
  Receive Date: 20220128
  Receipt Date: 20220128
  Transmission Date: 20220424
  Serious: No
  Sender: FDA-Public Use
  Company Number: US-Nexgen Pharma, Inc.-2124420

PATIENT
  Age: 55 Year
  Sex: Female

DRUGS (1)
  1. CHENODAL [Suspect]
     Active Substance: CHENODIOL
     Indication: Lipidosis
     Route: 048
     Dates: start: 20170222

REACTIONS (4)
  - COVID-19 [Unknown]
  - Weight decreased [Unknown]
  - Muscle atrophy [Unknown]
  - Blindness [Unknown]
